FAERS Safety Report 4990881-5 (Version None)
Quarter: 2006Q1

REPORT INFORMATION
  Report Type: 
  Country: None (occurrence: None)
  Receive Date: 20060314
  Receipt Date: 20060102
  Transmission Date: 20060701
  Serious: No
  Sender: FDA-Public Use
  Company Number: 2006-00002

PATIENT
  Age: 57 Year
  Sex: Male

DRUGS (5)
  1. VELCADE [Suspect]
     Indication: MULTIPLE MYELOMA
  2. THALOMID [Suspect]
     Indication: MULTIPLE MYELOMA
     Dosage: 200.00 MG, QD, ORAL; 50.00 MG, QD, ORAL
     Route: 048
     Dates: start: 20010601, end: 20010101
  3. THALOMID [Suspect]
     Indication: MULTIPLE MYELOMA
     Dosage: 200.00 MG, QD, ORAL; 50.00 MG, QD, ORAL
     Route: 048
     Dates: start: 20010901, end: 20050301
  4. DOXIL [Concomitant]
  5. CORTICOSTEROIDS [Concomitant]

REACTIONS (7)
  - BLOOD CREATININE INCREASED [None]
  - DISEASE PROGRESSION [None]
  - MUSCULOSKELETAL CHEST PAIN [None]
  - NEUROPATHY PERIPHERAL [None]
  - NEUTROPENIA [None]
  - RIB FRACTURE [None]
  - SPINAL DISORDER [None]
